FAERS Safety Report 6856365-4 (Version None)
Quarter: 2010Q3

REPORT INFORMATION
  Report Type: 
  Country: None (occurrence: None)
  Receive Date: 20100715
  Receipt Date: 20100715
  Transmission Date: 20110219
  Serious: No
  Sender: FDA-Public Use
  Company Number: None

PATIENT
  Sex: Female
  Weight: 114.1 kg

DRUGS (1)
  1. NEURONTIN [Suspect]
     Indication: NEURALGIA
     Dosage: 300 MG 3 TIMES A DAY ORALLY
     Route: 048
     Dates: start: 20100401, end: 20100701

REACTIONS (13)
  - ACTIVITIES OF DAILY LIVING IMPAIRED [None]
  - BLOOD PRESSURE INCREASED [None]
  - DIZZINESS [None]
  - FATIGUE [None]
  - FEELING ABNORMAL [None]
  - GAIT DISTURBANCE [None]
  - HEADACHE [None]
  - INCREASED APPETITE [None]
  - LIBIDO INCREASED [None]
  - PAPILLOEDEMA [None]
  - PHOTOPHOBIA [None]
  - RESTLESSNESS [None]
  - VISUAL IMPAIRMENT [None]
